FAERS Safety Report 25366445 (Version 1)
Quarter: 2025Q2

REPORT INFORMATION
  Report Type: Spontaneous
  Country: US (occurrence: US)
  Receive Date: 20250528
  Receipt Date: 20250528
  Transmission Date: 20250716
  Serious: Yes (Hospitalization)
  Sender: EXELA PHARMA SCIENCES
  Company Number: US-EXELAPHARMA-2025EXLA00091

PATIENT
  Age: 71 Year
  Sex: Male

DRUGS (4)
  1. ACETYLCYSTEINE [Suspect]
     Active Substance: ACETYLCYSTEINE
     Indication: Hepatotoxicity
  2. ACETYLCYSTEINE [Suspect]
     Active Substance: ACETYLCYSTEINE
  3. LACOSAMIDE [Concomitant]
     Active Substance: LACOSAMIDE
  4. LEVOCARNITINE [Concomitant]
     Active Substance: LEVOCARNITINE

REACTIONS (2)
  - Drug ineffective for unapproved indication [Unknown]
  - Condition aggravated [Unknown]
